FAERS Safety Report 4467012-3 (Version None)
Quarter: 2004Q3

REPORT INFORMATION
  Report Type: 
  Country: None (occurrence: None)
  Receive Date: 20040928
  Receipt Date: 20040928
  Transmission Date: 20050211
  Serious: Yes (Hospitalization)
  Sender: FDA-Public Use
  Company Number: None

PATIENT
  Sex: Male
  Weight: 89.3586 kg

DRUGS (4)
  1. COLLAGENASE [Suspect]
     Indication: DUPUYTREN'S CONTRACTURE
     Dosage: RANDON DOUBLE BLIND
     Dates: start: 20030721, end: 20041231
  2. TOPROL-XL [Concomitant]
  3. PRAVACHOL [Concomitant]
  4. ASPIRIN [Concomitant]

REACTIONS (1)
  - CEREBROVASCULAR ACCIDENT [None]
